FAERS Safety Report 7658591-3 (Version None)
Quarter: 2011Q3

REPORT INFORMATION
  Report Type: 
  Country: None (occurrence: None)
  Receive Date: 20110805
  Receipt Date: 20110804
  Transmission Date: 20111222
  Serious: Yes (Death)
  Sender: FDA-Public Use
  Company Number: FR-BRISTOL-MYERS SQUIBB COMPANY-15947914

PATIENT
  Age: 70 Year
  Sex: Male

DRUGS (1)
  1. TAXOL [Suspect]
     Dates: start: 20110315

REACTIONS (3)
  - CARDIAC ARREST [None]
  - ANAPHYLACTIC SHOCK [None]
  - MULTI-ORGAN FAILURE [None]
